FAERS Safety Report 15277746 (Version 2)
Quarter: 2021Q3

REPORT INFORMATION
  Report Type: Spontaneous
  Country: US (occurrence: US)
  Receive Date: 20180814
  Receipt Date: 20210930
  Transmission Date: 20211014
  Serious: Yes (Disabling)
  Sender: FDA-Public Use
  Company Number: US-TEVA-2018-US-942209

PATIENT
  Age: 54 Year
  Sex: Female

DRUGS (4)
  1. DOCETAXEL SANOFI [Suspect]
     Active Substance: DOCETAXEL
     Indication: BREAST CANCER FEMALE
     Dosage: NUMBER OF CYCLE: 06
     Route: 065
     Dates: start: 20140227, end: 20140612
  2. CYTOXAN [Suspect]
     Active Substance: CYCLOPHOSPHAMIDE
     Indication: BREAST CANCER FEMALE
     Dosage: NUMBER OF CYCLE: 06
     Route: 065
     Dates: start: 20140227, end: 20140612
  3. DOCETAXEL SAGENT [Suspect]
     Active Substance: DOCETAXEL
     Indication: BREAST CANCER FEMALE
     Dosage: NUMBER OF CYCLE: 06
     Route: 065
     Dates: start: 20140227, end: 20140612
  4. DOCETAXEL HOSPIRA [Suspect]
     Active Substance: DOCETAXEL
     Indication: BREAST CANCER FEMALE
     Dosage: NUMBER OF CYCLE: 06
     Route: 065
     Dates: start: 20140227, end: 20140612

REACTIONS (12)
  - Chest pain [Unknown]
  - Alopecia areata [Not Recovered/Not Resolved]
  - Bronchitis [Unknown]
  - Hair texture abnormal [Not Recovered/Not Resolved]
  - Peripheral swelling [Unknown]
  - Pain in extremity [Unknown]
  - Hair colour changes [Not Recovered/Not Resolved]
  - Musculoskeletal pain [Unknown]
  - Flushing [Unknown]
  - Arthralgia [Unknown]
  - Anaemia [Unknown]
  - Nausea [Unknown]

NARRATIVE: CASE EVENT DATE: 2014
